FAERS Safety Report 5471818-1 (Version None)
Quarter: 2007Q3

REPORT INFORMATION
  Report Type: 
  Country: None (occurrence: None)
  Receive Date: 20070928
  Receipt Date: 20070611
  Transmission Date: 20080115
  Serious: No
  Sender: FDA-Public Use
  Company Number: US-BRISTOL-MYERS SQUIBB COMPANY-13809694

PATIENT
  Age: 92 Year
  Sex: Female
  Weight: 64 kg

DRUGS (15)
  1. DEFINITY [Suspect]
     Indication: ECHOCARDIOGRAM
     Route: 042
     Dates: end: 20070607
  2. MIACALCIN [Concomitant]
  3. AMOXICILLIN [Concomitant]
  4. PRILOSEC [Concomitant]
  5. FERROUS SULFATE TAB [Concomitant]
  6. COREG [Concomitant]
  7. LASIX [Concomitant]
  8. AMIODARONE HCL [Concomitant]
  9. CALCIUM CARBONATE [Concomitant]
  10. OCUVITE [Concomitant]
  11. AVAPRO [Concomitant]
  12. ASPIRIN [Concomitant]
  13. LIPITOR [Concomitant]
  14. CITALOPRAM HYDROBROMIDE [Concomitant]
  15. ACETAMINOPHEN [Concomitant]

REACTIONS (1)
  - BACK PAIN [None]
